FAERS Safety Report 7535194-2 (Version None)
Quarter: 2011Q2

REPORT INFORMATION
  Report Type: 
  Country: None (occurrence: None)
  Receive Date: 20110609
  Receipt Date: 20090406
  Transmission Date: 20111010
  Serious: Yes (Hospitalization)
  Sender: FDA-Public Use
  Company Number: PHHY2009US07960

PATIENT
  Sex: Male

DRUGS (8)
  1. M.V.I. [Concomitant]
  2. PRILOSEC [Concomitant]
  3. ENALAPRIL MALEATE [Concomitant]
  4. ZOCOR [Concomitant]
  5. FISH OIL [Concomitant]
  6. ASPIRIN [Concomitant]
  7. GLEEVEC [Suspect]
     Dosage: 400 MG, QD
     Route: 048
     Dates: start: 20080701
  8. CALCIUM CARBONATE [Concomitant]

REACTIONS (2)
  - CAROTID ARTERY DISEASE [None]
  - ARTERIOGRAM [None]
